FAERS Safety Report 4532985-7 (Version None)
Quarter: 2005Q1

REPORT INFORMATION
  Report Type: 
  Country: None (occurrence: None)
  Receive Date: 20041206
  Receipt Date: 20041015
  Transmission Date: 20050727
  Serious: No
  Sender: FDA-Public Use
  Company Number: USA041081334

PATIENT
  Age: 42 Year
  Sex: Female
  Weight: 60 kg

DRUGS (4)
  1. CYMBALTA [Suspect]
     Indication: DEPRESSION
     Dosage: 30 MG DAY
     Dates: start: 20041010, end: 20041012
  2. MULTI-VITAMIN [Concomitant]
  3. VITAMIN B-12 [Concomitant]
  4. CHROMAGEN [Concomitant]

REACTIONS (2)
  - MIGRAINE WITHOUT AURA [None]
  - PAIN IN EXTREMITY [None]
